FAERS Safety Report 5488265-9 (Version None)
Quarter: 2007Q4

REPORT INFORMATION
  Report Type: 
  Country: None (occurrence: None)
  Receive Date: 20071017
  Receipt Date: 20071005
  Transmission Date: 20080405
  Serious: Yes (Hospitalization)
  Sender: FDA-Public Use
  Company Number: ES-ROCHE-523207

PATIENT
  Age: 38 Year
  Sex: Male
  Weight: 42.6 kg

DRUGS (5)
  1. ENFUVIRTIDE [Suspect]
     Indication: DRUG USE FOR UNKNOWN INDICATION
     Route: 065
     Dates: start: 20061004
  2. PEG-INTERFERON A-2A (RO 25-8310) [Suspect]
     Route: 058
     Dates: start: 20061207
  3. RIBAVIRIN [Suspect]
     Route: 048
     Dates: start: 20061207
  4. KALETRA [Concomitant]
     Dates: start: 20040316
  5. TRUVADA [Concomitant]
     Dates: start: 20061004

REACTIONS (1)
  - SUBCUTANEOUS ABSCESS [None]
